FAERS Safety Report 9495374 (Version 1)
Quarter: 2013Q3

REPORT INFORMATION
  Report Type: Spontaneous
  Country: JP (occurrence: JP)
  Receive Date: 20130903
  Receipt Date: 20130903
  Transmission Date: 20140515
  Serious: Yes (Hospitalization)
  Sender: FDA-Public Use
  Company Number: JP-GLAXOSMITHKLINE-B0919278A

PATIENT
  Age: 87 Year
  Sex: Male

DRUGS (4)
  1. FLOLAN [Suspect]
     Indication: PULMONARY ARTERIAL HYPERTENSION
     Route: 042
     Dates: start: 201101
  2. FUROSEMIDE [Concomitant]
     Indication: OEDEMA
     Dosage: 40MG PER DAY
     Route: 048
     Dates: start: 201101
  3. TRACLEER [Concomitant]
     Indication: PULMONARY ARTERIAL HYPERTENSION
     Dosage: 125MG TWICE PER DAY
     Route: 048
     Dates: start: 201101
  4. REVATIO [Concomitant]
     Indication: PULMONARY ARTERIAL HYPERTENSION
     Dosage: 20MG THREE TIMES PER DAY
     Route: 048
     Dates: start: 201101

REACTIONS (1)
  - Fracture [Unknown]
